FAERS Safety Report 8190748-8 (Version None)
Quarter: 2012Q1

REPORT INFORMATION
  Report Type: 
  Country: None (occurrence: None)
  Receive Date: 20120305
  Receipt Date: 20120223
  Transmission Date: 20120608
  Serious: Yes (Hospitalization, Other)
  Sender: FDA-Public Use
  Company Number: 2011002245

PATIENT
  Age: 60 Year
  Sex: Male
  Weight: 90 kg

DRUGS (18)
  1. ERLOTINIB HYDROCHLORIDE [Suspect]
     Indication: NON-SMALL CELL LUNG CANCER
     Dosage: 50 MG, ORAL
     Route: 048
     Dates: start: 20110121, end: 20110712
  2. SERETIDE (SERETIDE) [Concomitant]
  3. ALLOPURINOL [Concomitant]
  4. MIRTAZAPINE [Concomitant]
  5. PANTOPRAZOL (PANTOPRAZOLE) [Concomitant]
  6. CIPROFLOXACIN HCL [Concomitant]
  7. MAGNESIUM OXIDE (MAGNESIUM OXIDE) [Concomitant]
  8. SPIRIVA [Concomitant]
  9. SLOW-K [Concomitant]
  10. CAPTOPRIL/HYDROCHLOROTHIAZIDE (CAPTOPRIL, HYDROCHLOROTHIAZIDE) [Concomitant]
  11. VENTOLIN [Concomitant]
  12. FUROSEMIDE (FUROSEMIDE) [Concomitant]
  13. OXYCODONE HYDROCHLORIDE [Concomitant]
  14. AUGMENTIN '125' [Concomitant]
  15. PREDNISONE TAB [Concomitant]
  16. BEPANTHENE (DEXPANTHENOL) [Concomitant]
  17. CODEINE SULFATE [Concomitant]
  18. ESOMEPRAZOLE MAGNESIUM [Concomitant]

REACTIONS (13)
  - INCORRECT DOSE ADMINISTERED [None]
  - NON-SMALL CELL LUNG CANCER [None]
  - DYSPNOEA [None]
  - NEOPLASM PROGRESSION [None]
  - HAEMOGLOBIN DECREASED [None]
  - BLOOD POTASSIUM DECREASED [None]
  - DEVICE LEAKAGE [None]
  - OESOPHAGOBRONCHIAL FISTULA [None]
  - PNEUMONIA [None]
  - DECREASED APPETITE [None]
  - COUGH [None]
  - TACHYCARDIA [None]
  - HAEMATOCRIT DECREASED [None]
